FAERS Safety Report 20992195 (Version 3)
Quarter: 2022Q3

REPORT INFORMATION
  Report Type: Spontaneous
  Country: US (occurrence: US)
  Receive Date: 20220622
  Receipt Date: 20220920
  Transmission Date: 20221027
  Serious: Yes (Other)
  Sender: FDA-Public Use
  Company Number: US-JNJFOC-20220631748

PATIENT
  Age: 5 Decade
  Sex: Female

DRUGS (3)
  1. ELMIRON [Suspect]
     Active Substance: PENTOSAN POLYSULFATE SODIUM
     Indication: Cystitis interstitial
     Dosage: 100 MG, 3 TIMES DAILY
     Route: 048
     Dates: start: 2010, end: 2018
  2. ELMIRON [Suspect]
     Active Substance: PENTOSAN POLYSULFATE SODIUM
     Dosage: 100 MG, 3 TIMES DAILY
     Route: 048
     Dates: start: 2018, end: 2020
  3. INSULIN NOS [Concomitant]
     Active Substance: INSULIN NOS
     Indication: Diabetes mellitus
     Dates: start: 2010

REACTIONS (2)
  - Ocular neoplasm [Not Recovered/Not Resolved]
  - Eye degenerative disorder [Unknown]

NARRATIVE: CASE EVENT DATE: 20200101
